FAERS Safety Report 9786648 (Version 1)
Quarter: 2013Q4

REPORT INFORMATION
  Report Type: Spontaneous
  Country: JP (occurrence: JP)
  Receive Date: 20131227
  Receipt Date: 20131227
  Transmission Date: 20140711
  Serious: Yes (Hospitalization)
  Sender: FDA-Public Use
  Company Number: JP-EISAI INC-E2090-03049-SPO-JP

PATIENT
  Age: 42 Year
  Sex: Male

DRUGS (1)
  1. EXCEGRAN [Suspect]
     Indication: EPILEPSY
     Dosage: UNKNOWN
     Route: 048

REACTIONS (1)
  - Drug reaction with eosinophilia and systemic symptoms [Not Recovered/Not Resolved]
